FAERS Safety Report 6450426-X (Version None)
Quarter: 2009Q4

REPORT INFORMATION
  Report Type: 
  Country: None (occurrence: None)
  Receive Date: 20091123
  Receipt Date: 20091021
  Transmission Date: 20100525
  Serious: Yes (Other)
  Sender: FDA-Public Use
  Company Number: QA-BAYER-200838880NA

PATIENT
  Age: 48 Year
  Sex: Male

DRUGS (22)
  1. MAGNEVIST [Suspect]
     Indication: NUCLEAR MAGNETIC RESONANCE IMAGING
  2. OMNISCAN [Suspect]
     Indication: NUCLEAR MAGNETIC RESONANCE IMAGING
  3. OPTIMARK [Suspect]
     Indication: NUCLEAR MAGNETIC RESONANCE IMAGING
  4. PROHANCE [Suspect]
     Indication: NUCLEAR MAGNETIC RESONANCE IMAGING
  5. MULTIHANCE [Suspect]
     Indication: NUCLEAR MAGNETIC RESONANCE IMAGING
  6. EPOGEN [Concomitant]
  7. IRON SUPPLEMENTS [Concomitant]
  8. VITAMINS [Concomitant]
  9. HEART MEDICATIONS [Concomitant]
  10. ANTIBIOTICS [Concomitant]
  11. METHADONE HCL [Concomitant]
     Indication: ANALGESIC THERAPY
     Dosage: TOTAL DAILY DOSE: 80 MG
     Dates: start: 20060101
  12. BLOOD PRESSURE MEDICATIONS [Concomitant]
  13. BLOOD THINNERS [Concomitant]
  14. DIABETES MEDICATIONS [Concomitant]
  15. EFFEXOR XR [Concomitant]
     Indication: ANALGESIC THERAPY
     Dosage: TOTAL DAILY DOSE: 150 MG
     Route: 048
     Dates: start: 20060101
  16. HYDROCODONE [Concomitant]
     Indication: ANALGESIC THERAPY
     Dates: start: 20060101
  17. FENTANYL-50 [Concomitant]
     Indication: ANALGESIC THERAPY
     Dates: start: 20060101
  18. TOPROL-XL [Concomitant]
     Indication: HYPERTENSION
     Dates: start: 19950101, end: 20060101
  19. FOSRENOL [Concomitant]
     Dosage: TOTAL DAILY DOSE: 3000 MG
     Route: 048
     Dates: start: 20060101
  20. URSODIOL [Concomitant]
     Dosage: TOTAL DAILY DOSE: 500 MG
     Route: 048
  21. DILAUDID [Concomitant]
     Dosage: 8 MG Q3H PRN
     Route: 048
  22. AMBIEN [Concomitant]
     Dosage: TOTAL DAILY DOSE: 5 MG
     Route: 048

REACTIONS (17)
  - ANHEDONIA [None]
  - ANXIETY [None]
  - DEFORMITY [None]
  - DEPRESSION [None]
  - DRY SKIN [None]
  - DYSSTASIA [None]
  - GAIT DISTURBANCE [None]
  - INSOMNIA [None]
  - LOSS OF CONTROL OF LEGS [None]
  - NEPHROGENIC SYSTEMIC FIBROSIS [None]
  - PAIN [None]
  - PRURITUS [None]
  - SCAR [None]
  - SKIN EXFOLIATION [None]
  - SKIN HYPERTROPHY [None]
  - SKIN NECROSIS [None]
  - SWELLING [None]
